FAERS Safety Report 24780485 (Version 1)
Quarter: 2024Q4

REPORT INFORMATION
  Report Type: Spontaneous
  Country: US (occurrence: US)
  Receive Date: 20241227
  Receipt Date: 20241227
  Transmission Date: 20250115
  Serious: No
  Sender: BRISTOL-MYERS SQUIBB COMPANY
  Company Number: US-BRISTOL-MYERS SQUIBB COMPANY-2024-199015

PATIENT
  Age: 81 Year
  Sex: Male
  Weight: 89.81 kg

DRUGS (1)
  1. ELIQUIS [Suspect]
     Active Substance: APIXABAN
     Indication: Thrombosis
     Dosage: DOSE : 5 MG;     FREQ : BID
     Route: 048
     Dates: start: 202408

REACTIONS (3)
  - Product use issue [Unknown]
  - Hypertension [Unknown]
  - Blood viscosity increased [Unknown]
